FAERS Safety Report 23784439 (Version 1)
Quarter: 2024Q2

REPORT INFORMATION
  Report Type: Spontaneous
  Country: US (occurrence: None)
  Receive Date: 20240425
  Receipt Date: 20240425
  Transmission Date: 20240716
  Serious: Yes (Hospitalization)
  Sender: FDA-Public Use
  Company Number: None

PATIENT
  Sex: Male

DRUGS (3)
  1. ADVATE [Suspect]
     Active Substance: ANTIHEMOPHILIC FACTOR, HUMAN RECOMBINANT
     Indication: Factor VIII activity decreased
     Dosage: OTHER STRENGTH : 1000;?FREQUENCY: EVERY 12-24 HOURS
     Route: 042
     Dates: start: 202308
  2. ADVATE [Suspect]
     Active Substance: ANTIHEMOPHILIC FACTOR, HUMAN RECOMBINANT
     Indication: Factor VIII activity decreased
     Dosage: OTHER STRENGTH : 250;?FREQUENCY: EVERY 12-24 HOURS
     Route: 042
     Dates: start: 202308
  3. HULIBRA SDV [Concomitant]

REACTIONS (1)
  - Weight increased [Unknown]
